FAERS Safety Report 9385921 (Version 1)
Quarter: 2013Q3

REPORT INFORMATION
  Report Type: Spontaneous
  Country: NL (occurrence: NL)
  Receive Date: 20130705
  Receipt Date: 20130705
  Transmission Date: 20140515
  Serious: Yes (Death)
  Sender: FDA-Public Use
  Company Number: NL-B.I. PHARMACEUTICALS,INC./RIDGEFIELD-2013-NL-00396NL

PATIENT
  Age: 74 Year
  Sex: Female
  Weight: 100 kg

DRUGS (6)
  1. PRADAXA [Suspect]
     Indication: ATRIAL FIBRILLATION
     Dosage: 300 MG
     Route: 048
  2. METOPROLOL RET [Concomitant]
     Dosage: 50 MG
     Route: 048
  3. PANTOZOL [Concomitant]
     Dosage: 40 MG
     Route: 048
  4. CODIOVAN [Concomitant]
     Dosage: 320/25 MG
     Route: 048
  5. RASILEX [Concomitant]
     Dosage: 150 MG
     Route: 048
  6. AMIODARONE [Concomitant]
     Dosage: 200 MG
     Route: 048

REACTIONS (1)
  - Subarachnoid haemorrhage [Fatal]
